FAERS Safety Report 9783946 (Version 2)
Quarter: 2014Q1

REPORT INFORMATION
  Report Type: Spontaneous
  Country: JP (occurrence: JP)
  Receive Date: 20131226
  Receipt Date: 20140130
  Transmission Date: 20141002
  Serious: Yes (Other)
  Sender: FDA-Public Use
  Company Number: PHHY2013JP149500

PATIENT
  Sex: Male

DRUGS (3)
  1. CEFEPIME [Suspect]
     Indication: PNEUMONIA
     Dosage: 1 G, QD
     Route: 042
     Dates: start: 20131213
  2. CEFEPIME [Suspect]
     Dosage: 2 G, QD
     Route: 042
     Dates: start: 20131214, end: 20131217
  3. CALONAL [Concomitant]
     Route: 048

REACTIONS (1)
  - Liver disorder [Recovering/Resolving]
